FAERS Safety Report 24645214 (Version 1)
Quarter: 2024Q4

REPORT INFORMATION
  Report Type: Spontaneous
  Country: US (occurrence: US)
  Receive Date: 20241121
  Receipt Date: 20241121
  Transmission Date: 20250115
  Serious: No
  Sender: ALVOGEN
  Company Number: US-ALVOGEN-2024094068

PATIENT
  Sex: Female
  Weight: 81.64 kg

DRUGS (4)
  1. TERIPARATIDE [Suspect]
     Active Substance: TERIPARATIDE
     Indication: Osteoporosis
     Dosage: SHE STARTED WITH TERIPARATIDE IN AUGUST 2023 OR SEPTEMBER 2023 FOR FIRST TIME
     Dates: start: 2023
  2. TERIPARATIDE [Suspect]
     Active Substance: TERIPARATIDE
     Indication: Osteoporosis
     Dosage: TERIPARATIDE PEN 620/2.48?EXPIRATION DATE: UU-NOV-2024?IN ABDOMEN
     Route: 058
     Dates: start: 202311
  3. Buprenorphine sublingual film [Concomitant]
     Indication: Intervertebral disc protrusion
  4. GABAPENTIN [Concomitant]
     Active Substance: GABAPENTIN
     Indication: Back disorder

REACTIONS (4)
  - Feeling abnormal [Not Recovered/Not Resolved]
  - Fatigue [Not Recovered/Not Resolved]
  - Asthenia [Not Recovered/Not Resolved]
  - Therapy cessation [Unknown]
